FAERS Safety Report 22618202 (Version 2)
Quarter: 2024Q3

REPORT INFORMATION
  Report Type: Spontaneous
  Country: HR (occurrence: HR)
  Receive Date: 20230620
  Receipt Date: 20240711
  Transmission Date: 20241017
  Serious: No
  Sender: PIERRE FABRE MEDICAMENT
  Company Number: HR-NOVPHSZ-PHHY2018HR017157

PATIENT

DRUGS (5)
  1. PROPRANOLOL [Suspect]
     Active Substance: PROPRANOLOL HYDROCHLORIDE
     Indication: Migraine
     Dosage: UNK
     Route: 065
  2. PROPRANOLOL [Suspect]
     Active Substance: PROPRANOLOL HYDROCHLORIDE
     Indication: Prophylaxis
  3. PROPRANOLOL [Suspect]
     Active Substance: PROPRANOLOL HYDROCHLORIDE
     Indication: Off label use
  4. ABOBOTULINUMTOXINA [Suspect]
     Active Substance: ABOBOTULINUMTOXINA
     Indication: Migraine
     Dosage: UNK
     Route: 065
  5. AMITRIPTYLINE [Suspect]
     Active Substance: AMITRIPTYLINE
     Indication: Migraine
     Dosage: UNK
     Route: 065

REACTIONS (3)
  - Treatment failure [Unknown]
  - Product use in unapproved indication [Unknown]
  - Off label use [Unknown]
